FAERS Safety Report 17309024 (Version 1)
Quarter: 2020Q1

REPORT INFORMATION
  Report Type: Spontaneous
  Country: US (occurrence: US)
  Receive Date: 20200123
  Receipt Date: 20200123
  Transmission Date: 20200409
  Serious: Yes (Other)
  Sender: FDA-Public Use
  Company Number: None

PATIENT
  Age: 31 Year
  Sex: Female
  Weight: 66.15 kg

DRUGS (11)
  1. VITAMIN D3 [Concomitant]
     Active Substance: CHOLECALCIFEROL
  2. AMITRYPTALINE [Concomitant]
     Active Substance: AMITRIPTYLINE
  3. BUSPIRONE [Concomitant]
     Active Substance: BUSPIRONE HYDROCHLORIDE
  4. PRISTIQ EXTENDED-RELEASE [Concomitant]
     Active Substance: DESVENLAFAXINE SUCCINATE
  5. KEPPRA [Concomitant]
     Active Substance: LEVETIRACETAM
  6. AMOXETINE [Concomitant]
  7. ALPRAZOLAM. [Concomitant]
     Active Substance: ALPRAZOLAM
  8. MIRENA [Concomitant]
     Active Substance: LEVONORGESTREL
  9. TYSABRI [Suspect]
     Active Substance: NATALIZUMAB
     Dosage: ?          OTHER FREQUENCY:28-30 DAYS;?
     Route: 042
  10. ADEPALINE GEL [Concomitant]
  11. SUMATRIPTIN [Concomitant]

REACTIONS (3)
  - Insurance issue [None]
  - Pain [None]
  - Feeling of despair [None]

NARRATIVE: CASE EVENT DATE: 20200101
